FAERS Safety Report 17017238 (Version 1)
Quarter: 2019Q4

REPORT INFORMATION
  Report Type: Spontaneous
  Country: NL (occurrence: NL)
  Receive Date: 20191111
  Receipt Date: 20191111
  Transmission Date: 20200122
  Serious: Yes (Hospitalization)
  Sender: FDA-Public Use
  Company Number: NL-MYLANLABS-2019M1106803

PATIENT
  Age: 67 Year
  Sex: Male
  Weight: 94 kg

DRUGS (2)
  1. PREZAL [Concomitant]
     Active Substance: LANSOPRAZOLE
     Dosage: 1X DAAGS 30MG
  2. METOPROLOLSUCCINAAT RETARD MYLAN [Suspect]
     Active Substance: METOPROLOL SUCCINATE
     Indication: ARRHYTHMIA
     Dosage: 1X PERDAG 1/2 TABLET 95 MG METOPROLOLSUCCINAAT RETARD MYLAN 100
     Route: 048
     Dates: start: 20190419, end: 20190423

REACTIONS (10)
  - Back pain [Not Recovered/Not Resolved]
  - Rash pruritic [Not Recovered/Not Resolved]
  - Fatigue [Not Recovered/Not Resolved]
  - Tachyarrhythmia [Not Recovered/Not Resolved]
  - Abdominal pain [Not Recovered/Not Resolved]
  - Dizziness [Not Recovered/Not Resolved]
  - Therapeutic response unexpected [Unknown]
  - Vision blurred [Not Recovered/Not Resolved]
  - Diarrhoea [Not Recovered/Not Resolved]
  - Nausea [Not Recovered/Not Resolved]

NARRATIVE: CASE EVENT DATE: 20190420
